FAERS Safety Report 4678832-4 (Version None)
Quarter: 2005Q2

REPORT INFORMATION
  Report Type: 
  Country: None (occurrence: None)
  Receive Date: 20050531
  Receipt Date: 20050525
  Transmission Date: 20051028
  Serious: Yes (Congenital Anomaly)
  Sender: FDA-Public Use
  Company Number: A0533502A

PATIENT
  Sex: Male
  Weight: 2.9937 kg

DRUGS (2)
  1. IMITREX [Suspect]
     Indication: MIGRAINE
     Dosage: SEE DOSAGE TEXT/TRANSPLAC
     Route: 064
     Dates: start: 20041001
  2. FIORICET [Concomitant]

REACTIONS (4)
  - CAESAREAN SECTION [None]
  - CARTILAGE DEVELOPMENT DISORDER [None]
  - DRUG EXPOSURE DURING PREGNANCY [None]
  - GASTROSCHISIS [None]
